FAERS Safety Report 7640863-X (Version None)
Quarter: 2011Q3

REPORT INFORMATION
  Report Type: 
  Country: None (occurrence: None)
  Receive Date: 20110721
  Receipt Date: 20110711
  Transmission Date: 20111222
  Serious: Yes (Hospitalization, Disabling)
  Sender: FDA-Public Use
  Company Number: 2011SP032521

PATIENT
  Sex: Female

DRUGS (1)
  1. DESLORATADINE [Suspect]
     Indication: ASTHMA
     Dosage: 5 MG;QPM

REACTIONS (4)
  - HIP FRACTURE [None]
  - BALANCE DISORDER [None]
  - MALAISE [None]
  - FALL [None]
